FAERS Safety Report 6838746-8 (Version None)
Quarter: 2010Q3

REPORT INFORMATION
  Report Type: 
  Country: None (occurrence: None)
  Receive Date: 20100713
  Receipt Date: 20070613
  Transmission Date: 20110219
  Serious: No
  Sender: FDA-Public Use
  Company Number: US-PFIZER INC-2007040644

PATIENT
  Sex: Female
  Weight: 54.09 kg

DRUGS (3)
  1. CHANTIX [Suspect]
     Indication: SMOKING CESSATION THERAPY
     Route: 048
     Dates: start: 20070429, end: 20070501
  2. ASPIRINE [Concomitant]
     Route: 048
  3. VALIUM [Concomitant]
     Route: 048

REACTIONS (7)
  - ABNORMAL DREAMS [None]
  - CIRCADIAN RHYTHM SLEEP DISORDER [None]
  - DEPRESSION [None]
  - FEELING ABNORMAL [None]
  - MOOD ALTERED [None]
  - NAUSEA [None]
  - POOR QUALITY SLEEP [None]
